FAERS Safety Report 20388405 (Version 1)
Quarter: 2022Q1

REPORT INFORMATION
  Report Type: Spontaneous
  Country: US (occurrence: US)
  Receive Date: 20220128
  Receipt Date: 20220128
  Transmission Date: 20220424
  Serious: No
  Sender: FDA-Public Use
  Company Number: US-BIOGEN-2021BI01058760

PATIENT
  Age: 38 Year
  Sex: Female

DRUGS (1)
  1. TYSABRI [Suspect]
     Active Substance: NATALIZUMAB
     Indication: Multiple sclerosis
     Route: 065
     Dates: start: 20211008

REACTIONS (7)
  - Gastrointestinal disorder [Unknown]
  - Gastric disorder [Unknown]
  - Abdominal pain [Unknown]
  - Irritable bowel syndrome [Unknown]
  - Fatigue [Unknown]
  - Diarrhoea [Unknown]
  - Pruritus [Unknown]

NARRATIVE: CASE EVENT DATE: 20211001
